FAERS Safety Report 10176601 (Version 2)
Quarter: 2014Q2

REPORT INFORMATION
  Report Type: Spontaneous
  Country: PL (occurrence: PL)
  Receive Date: 20140516
  Receipt Date: 20140526
  Transmission Date: 20141212
  Serious: Yes (Death, Other)
  Sender: FDA-Public Use
  Company Number: PHHY2014PL058075

PATIENT
  Age: 39 Year
  Sex: Female

DRUGS (1)
  1. IMATINIB [Suspect]
     Indication: CHRONIC MYELOID LEUKAEMIA
     Dosage: 400 MG, UNK
     Dates: start: 20090515, end: 20090803

REACTIONS (8)
  - Cerebral haemorrhage [Fatal]
  - Nervous system disorder [Fatal]
  - Chronic myeloid leukaemia [Fatal]
  - Coagulopathy [Unknown]
  - No therapeutic response [Unknown]
  - Abdominal pain [Unknown]
  - Headache [Unknown]
  - Drug resistance [Unknown]
